FAERS Safety Report 21749343 (Version 1)
Quarter: 2022Q4

REPORT INFORMATION
  Report Type: Report from Study
  Country: DE (occurrence: DE)
  Receive Date: 20221219
  Receipt Date: 20221219
  Transmission Date: 20230113
  Serious: Yes (Death, Hospitalization)
  Sender: FDA-Public Use
  Company Number: DE-PFIZER INC-PV202200124288

PATIENT
  Age: 78 Year
  Sex: Female

DRUGS (5)
  1. UNSPECIFIED INGREDIENT [Suspect]
     Active Substance: UNSPECIFIED INGREDIENT
     Dosage: UNK
  2. XELJANZ [Suspect]
     Active Substance: TOFACITINIB CITRATE
     Dosage: 5 MG, 1X/DAY
     Dates: end: 202201
  3. PREDNISOLONE [Concomitant]
     Active Substance: PREDNISOLONE
  4. FENTANYL [Concomitant]
     Active Substance: FENTANYL
  5. PROLIA [Concomitant]
     Active Substance: DENOSUMAB

REACTIONS (3)
  - Respiratory failure [Fatal]
  - Pulmonary hypertension [Fatal]
  - Cardiac failure [Fatal]

NARRATIVE: CASE EVENT DATE: 20220125
